FAERS Safety Report 24179159 (Version 1)
Quarter: 2024Q3

REPORT INFORMATION
  Report Type: Spontaneous
  Country: TW (occurrence: TW)
  Receive Date: 20240806
  Receipt Date: 20240806
  Transmission Date: 20241017
  Serious: Yes (Hospitalization, Other)
  Sender: PFIZER
  Company Number: TW-PFIZER INC-HQWYE477315SEP05

PATIENT
  Age: 33 Year
  Sex: Female

DRUGS (2)
  1. METHOTREXATE SODIUM [Suspect]
     Active Substance: METHOTREXATE SODIUM
     Indication: Ectopic pregnancy
     Dosage: 50 MG,1X/2 DAY
     Route: 030
  2. MISOPROSTOL [Suspect]
     Active Substance: MISOPROSTOL
     Indication: Ectopic pregnancy
     Dosage: 400 UG, WEEKLY
     Route: 067

REACTIONS (4)
  - Vaginal haemorrhage [Recovered/Resolved]
  - Drug ineffective for unapproved indication [Recovered/Resolved]
  - Retained products of conception [Recovered/Resolved]
  - Off label use [Recovered/Resolved]
